FAERS Safety Report 9397549 (Version 1)
Quarter: 2013Q3

REPORT INFORMATION
  Report Type: Spontaneous
  Country: US (occurrence: US)
  Receive Date: 20130712
  Receipt Date: 20130712
  Transmission Date: 20140515
  Serious: Yes (Other)
  Sender: FDA-Public Use
  Company Number: US-PFIZER INC-2013201814

PATIENT
  Age: 69 Year
  Sex: Female
  Weight: 108.84 kg

DRUGS (1)
  1. XELJANZ [Suspect]
     Indication: SARCOIDOSIS
     Dosage: 5 MG, 2X/DAY
     Route: 048
     Dates: start: 20130204, end: 20130708

REACTIONS (4)
  - Off label use [Unknown]
  - Atrial fibrillation [Not Recovered/Not Resolved]
  - Red blood cell count decreased [Not Recovered/Not Resolved]
  - Gastrointestinal haemorrhage [Unknown]
